FAERS Safety Report 6409226-9 (Version None)
Quarter: 2009Q4

REPORT INFORMATION
  Report Type: 
  Country: None (occurrence: None)
  Receive Date: 20091019
  Receipt Date: 20091019
  Transmission Date: 20100525
  Serious: No
  Sender: FDA-Public Use
  Company Number: None

PATIENT
  Age: 85 Year
  Sex: Female
  Weight: 68.0396 kg

DRUGS (1)
  1. OMNARIS [Suspect]
     Indication: MULTIPLE ALLERGIES
     Dosage: DAILY NASAL
     Route: 045
     Dates: start: 20090714, end: 20091001

REACTIONS (3)
  - FATIGUE [None]
  - FEELING ABNORMAL [None]
  - HEADACHE [None]
